FAERS Safety Report 23617364 (Version 2)
Quarter: 2024Q1

REPORT INFORMATION
  Report Type: Spontaneous
  Country: US (occurrence: US)
  Receive Date: 20240311
  Receipt Date: 20240321
  Transmission Date: 20240410
  Serious: Yes (Hospitalization)
  Sender: FDA-Public Use
  Company Number: US-TEVA-VS-3164371

PATIENT
  Age: 53 Year
  Sex: Female

DRUGS (4)
  1. CLOZAPINE [Suspect]
     Active Substance: CLOZAPINE
     Indication: Schizoaffective disorder
     Route: 065
  2. LITHIUM [Suspect]
     Active Substance: LITHIUM
     Indication: Schizoaffective disorder
     Route: 065
  3. LORAZEPAM [Suspect]
     Active Substance: LORAZEPAM
     Indication: Toxicity to various agents
     Dosage: TIME INTERVAL: 0.33333333 DAYS: DOSAGE: THREE TIMES A DAY
     Route: 042
  4. LORAZEPAM [Suspect]
     Active Substance: LORAZEPAM
     Indication: Toxicity to various agents
     Dosage: TIME INTERVAL: 0.33333333 DAYS: DOSAGE: THREE TIMES A DAY
     Route: 042

REACTIONS (3)
  - Toxicity to various agents [Recovering/Resolving]
  - Catatonia [Recovering/Resolving]
  - Drug ineffective [Unknown]
